FAERS Safety Report 23658767 (Version 1)
Quarter: 2024Q1

REPORT INFORMATION
  Report Type: Spontaneous
  Country: US (occurrence: US)
  Receive Date: 20240321
  Receipt Date: 20240321
  Transmission Date: 20240409
  Serious: No
  Sender: FDA-Public Use
  Company Number: US-Calliditas-2024CAL00445

PATIENT
  Age: 30 Year
  Sex: Female

DRUGS (1)
  1. TARPEYO [Suspect]
     Active Substance: BUDESONIDE
     Indication: IgA nephropathy
     Route: 048
     Dates: start: 20230814

REACTIONS (6)
  - Pain [Unknown]
  - Eye inflammation [Unknown]
  - Back pain [Unknown]
  - Muscle tightness [Unknown]
  - Hypoaesthesia [Unknown]
  - Headache [Unknown]
